FAERS Safety Report 20204627 (Version 2)
Quarter: 2022Q1

REPORT INFORMATION
  Report Type: Spontaneous
  Country: US (occurrence: US)
  Receive Date: 20211220
  Receipt Date: 20220106
  Transmission Date: 20220423
  Serious: No
  Sender: FDA-Public Use
  Company Number: US-TEVA-2021-US-1989027

PATIENT
  Age: 63 Year
  Sex: Male

DRUGS (1)
  1. ALPRAZOLAM [Suspect]
     Active Substance: ALPRAZOLAM
     Indication: Anxiety
     Route: 065
     Dates: start: 202111

REACTIONS (3)
  - Dizziness [Not Recovered/Not Resolved]
  - Drug ineffective [Unknown]
  - Vertigo [Unknown]

NARRATIVE: CASE EVENT DATE: 20211101
